FAERS Safety Report 9335453 (Version 3)
Quarter: 2013Q3

REPORT INFORMATION
  Report Type: Spontaneous
  Country: US (occurrence: US)
  Receive Date: 20130605
  Receipt Date: 20130822
  Transmission Date: 20140515
  Serious: No
  Sender: FDA-Public Use
  Company Number: US-PFIZER INC-2013170377

PATIENT
  Age: 58 Year
  Sex: Female
  Weight: 129 kg

DRUGS (3)
  1. LYRICA [Suspect]
     Indication: PAIN IN EXTREMITY
     Dosage: 25 MG, UNK
     Dates: start: 201303
  2. LYRICA [Suspect]
     Dosage: 75 MG, UNK
     Dates: start: 2013
  3. LYRICA [Suspect]
     Dosage: UNK

REACTIONS (4)
  - Blood glucose abnormal [Unknown]
  - Dyspnoea [Unknown]
  - Local swelling [Unknown]
  - Blood glucose increased [Unknown]
